FAERS Safety Report 22210723 (Version 1)
Quarter: 2023Q2

REPORT INFORMATION
  Report Type: Spontaneous
  Country: US (occurrence: US)
  Receive Date: 20230414
  Receipt Date: 20230414
  Transmission Date: 20230721
  Serious: Yes (Hospitalization, Other)
  Sender: FDA-Public Use
  Company Number: US-Fresenius Medical Care Renal Therapies Group-FMC-2304-000350

PATIENT
  Age: 89 Year
  Sex: Male
  Weight: 60.5 kg

DRUGS (3)
  1. DELFLEX WITH DEXTROSE 1.5% LOW MAGNESIUM LOW CALCIUM [Suspect]
     Active Substance: CALCIUM CHLORIDE\DEXTROSE\MAGNESIUM CHLORIDE\SODIUM CHLORIDE\SODIUM LACTATE
     Indication: End stage renal disease
     Dosage: 6 DAYS-A-WEEK, EXCHANGES = 6, FILL VOLUME = 2200 ML, DWELL TIME = 1.0 HOUR 6 MINUTES, LAST FILL = N/
     Route: 033
  2. DELFLEX WITH DEXTROSE 2.5% LOW MAGNESIUM LOW CALCIUM [Suspect]
     Active Substance: CALCIUM CHLORIDE\DEXTROSE\MAGNESIUM CHLORIDE\SODIUM CHLORIDE\SODIUM LACTATE
     Indication: End stage renal disease
     Dosage: 6 DAYS-A-WEEK, EXCHANGES = 6, FILL VOLUME = 2200 ML, DWELL TIME = 1.0 HOUR 6 MINUTES, LAST FILL = N/
     Route: 033
  3. DELFLEX WITH DEXTROSE 4.25% LOW MAGNESIUM LOW CALCIUM [Suspect]
     Active Substance: CALCIUM CHLORIDE\DEXTROSE\MAGNESIUM CHLORIDE\SODIUM CHLORIDE\SODIUM LACTATE
     Indication: End stage renal disease
     Dosage: 6 DAYS-A-WEEK, EXCHANGES = 6, FILL VOLUME = 2200 ML, DWELL TIME = 1.0 HOUR 6 MINUTES, LAST FILL = N/
     Route: 033

REACTIONS (1)
  - Peritonitis bacterial [Recovering/Resolving]
